FAERS Safety Report 25338836 (Version 1)
Quarter: 2025Q2

REPORT INFORMATION
  Report Type: Spontaneous
  Country: US (occurrence: US)
  Receive Date: 20250520
  Receipt Date: 20250520
  Transmission Date: 20250717
  Serious: No
  Sender: NOVARTIS
  Company Number: US-002147023-NVSC2025US079004

PATIENT
  Sex: Female
  Weight: 53 kg

DRUGS (1)
  1. KYMRIAH [Suspect]
     Active Substance: TISAGENLECLEUCEL
     Indication: B-cell type acute leukaemia
     Route: 042

REACTIONS (3)
  - Behaviour disorder [Unknown]
  - Anger [Unknown]
  - Emotional disorder [Unknown]
